FAERS Safety Report 14068654 (Version 4)
Quarter: 2018Q1

REPORT INFORMATION
  Report Type: Spontaneous
  Country: US (occurrence: US)
  Receive Date: 20171010
  Receipt Date: 20180110
  Transmission Date: 20180508
  Serious: No
  Sender: FDA-Public Use
  Company Number: US-PFIZER INC-2016430780

PATIENT
  Age: 53 Year
  Sex: Male
  Weight: 181.8 kg

DRUGS (2)
  1. VIAGRA [Suspect]
     Active Substance: SILDENAFIL CITRATE
     Indication: ERECTILE DYSFUNCTION
     Dosage: 100 MG, AS NEEDED (1 HOUR PRIOR TO SEX)
     Dates: start: 2015
  2. VIAGRA [Suspect]
     Active Substance: SILDENAFIL CITRATE
     Indication: SEXUAL DYSFUNCTION

REACTIONS (4)
  - Anxiety [Unknown]
  - Weight decreased [Unknown]
  - Drug prescribing error [Unknown]
  - Vertigo [Unknown]

NARRATIVE: CASE EVENT DATE: 2016
